FAERS Safety Report 21844084 (Version 1)
Quarter: 2023Q1

REPORT INFORMATION
  Report Type: Report from Study
  Country: US (occurrence: None)
  Receive Date: 20230110
  Receipt Date: 20230110
  Transmission Date: 20230418
  Serious: Yes (Disabling, Other)
  Sender: FDA-Public Use
  Company Number: 2023A002009

PATIENT
  Sex: Female

DRUGS (1)
  1. BUDESONIDE\FORMOTEROL\GLYCOPYRRONIUM [Suspect]
     Active Substance: BUDESONIDE\FORMOTEROL\GLYCOPYRRONIUM
     Dosage: 2 PUFFS DAILY
     Route: 055

REACTIONS (5)
  - Neoplasm [Unknown]
  - Blindness unilateral [Unknown]
  - Dyspnoea [Unknown]
  - Choking [Unknown]
  - Product use issue [Unknown]
